FAERS Safety Report 12054163 (Version 1)
Quarter: 2016Q1

REPORT INFORMATION
  Report Type: Report from Study
  Country: US (occurrence: US)
  Receive Date: 20160209
  Receipt Date: 20160209
  Transmission Date: 20160526
  Serious: Yes (Other)
  Sender: FDA-Public Use
  Company Number: US-US WORLDMEDS, LLC-USW201601-000117

PATIENT
  Age: 0 Month
  Sex: Female

DRUGS (2)
  1. NADOLOL. [Suspect]
     Active Substance: NADOLOL
     Indication: LONG QT SYNDROME
  2. NADOLOL. [Suspect]
     Active Substance: NADOLOL

REACTIONS (2)
  - Hypoglycaemic seizure [Recovered/Resolved]
  - Product use issue [Unknown]
